FAERS Safety Report 26199142 (Version 1)
Quarter: 2025Q4

REPORT INFORMATION
  Report Type: Spontaneous
  Country: US (occurrence: US)
  Receive Date: 20251225
  Receipt Date: 20251225
  Transmission Date: 20260118
  Serious: No
  Sender: ABBVIE
  Company Number: US-ABBVIE-6603084

PATIENT
  Sex: Female

DRUGS (1)
  1. RISANKIZUMAB [Suspect]
     Active Substance: RISANKIZUMAB
     Indication: Psoriasis
     Route: 058

REACTIONS (3)
  - Mobility decreased [Not Recovered/Not Resolved]
  - Arthralgia [Unknown]
  - Pain in extremity [Unknown]
